FAERS Safety Report 8565952-7 (Version None)
Quarter: 2012Q3

REPORT INFORMATION
  Report Type: 
  Country: None (occurrence: None)
  Receive Date: 20120803
  Receipt Date: 20110824
  Transmission Date: 20120928
  Serious: No
  Sender: FDA-Public Use
  Company Number: US-ABBOTT-11P-163-0848859-00

PATIENT
  Sex: Female
  Weight: 54.934 kg

DRUGS (3)
  1. NIASPAN [Suspect]
     Indication: LUMBAR PUNCTURE
     Dosage: AT BEDTIME
     Dates: start: 20110822
  2. LIPITOR [Concomitant]
     Indication: PRODUCT USED FOR UNKNOWN INDICATION
  3. VITAMIN D [Concomitant]
     Indication: PRODUCT USED FOR UNKNOWN INDICATION

REACTIONS (1)
  - PRURITUS GENERALISED [None]
